FAERS Safety Report 18695344 (Version 1)
Quarter: 2021Q1

REPORT INFORMATION
  Report Type: Spontaneous
  Country: DE (occurrence: DE)
  Receive Date: 20210104
  Receipt Date: 20210104
  Transmission Date: 20210419
  Serious: Yes (Death, Life-Threatening, Hospitalization)
  Sender: FDA-Public Use
  Company Number: DE-TEVA-2020-DE-1864042

PATIENT
  Age: 96 Year
  Sex: Male

DRUGS (10)
  1. EPLERENONE. [Concomitant]
     Active Substance: EPLERENONE
     Dosage: 25 MILLIGRAM DAILY; 1?0?0?0
  2. ATORVASTATIN [Concomitant]
     Active Substance: ATORVASTATIN
     Dosage: 20 MILLIGRAM DAILY; 0?0?0?1
  3. HUMINSULIN PROFIL III 30/70 300I.E. 100I.E./ML [Suspect]
     Active Substance: INSULIN HUMAN
     Dosage: 8 IU (INTERNATIONAL UNIT) DAILY;  0?0?1?0
     Route: 058
  4. PANTOPRAZOL [Concomitant]
     Active Substance: PANTOPRAZOLE SODIUM
     Dosage: 40 MILLIGRAM DAILY; 1?0?0?0
  5. INDAPAMID [Suspect]
     Active Substance: INDAPAMIDE
     Dosage: .5 DOSAGE FORMS DAILY; 1.5 MG, 0.5?0?0?0
  6. CARVEDILOL. [Concomitant]
     Active Substance: CARVEDILOL
     Dosage: 6.25 MILLIGRAM DAILY; 1?0?0?0
  7. ISOPHANE INSULIN [Suspect]
     Active Substance: INSULIN NOS
     Dosage: 12 IU (INTERNATIONAL UNIT) DAILY; 1?0?0?0
     Route: 058
  8. HYALURONSAURE [Concomitant]
     Active Substance: HYALURONIC ACID
     Dosage: NEED, DROPS
     Route: 047
  9. METAMIZOL [Concomitant]
     Active Substance: METAMIZOLE SODIUM
     Dosage: 500 MG, AS NEEDED
  10. TORASEMID [Suspect]
     Active Substance: TORSEMIDE
     Dosage: 10 MG, 2?0?1?0

REACTIONS (6)
  - Cold sweat [Unknown]
  - Vomiting [Unknown]
  - Hypokalaemia [Unknown]
  - Hypophagia [Unknown]
  - Hypoglycaemia [Unknown]
  - Electrolyte imbalance [Unknown]
